FAERS Safety Report 9868623 (Version 1)
Quarter: 2014Q1

REPORT INFORMATION
  Report Type: Spontaneous
  Country: CL (occurrence: CL)
  Receive Date: 20140204
  Receipt Date: 20140204
  Transmission Date: 20141002
  Serious: Yes (Hospitalization)
  Sender: FDA-Public Use
  Company Number: CL-PFIZER INC-2014031851

PATIENT
  Age: 61 Year
  Sex: Male

DRUGS (6)
  1. LIPITOR [Suspect]
     Indication: BLOOD CHOLESTEROL
     Dosage: 20 MG, 1X/DAY
     Dates: start: 201011
  2. CONCOR [Concomitant]
     Dosage: 1.25 MG, 1X/DAY
  3. ECOTRIN [Concomitant]
     Dosage: 100 MG, 1X/DAY
  4. ALPRAZOLAM [Concomitant]
     Dosage: 0.5 MG, 1X/DAY
  5. GLUCOSAMINE [Concomitant]
  6. LOSARTAN [Concomitant]
     Dosage: 50 MG, 1X/DAY

REACTIONS (2)
  - Loss of consciousness [Recovered/Resolved]
  - Chondropathy [Not Recovered/Not Resolved]
